FAERS Safety Report 5497007-2 (Version None)
Quarter: 2007Q4

REPORT INFORMATION
  Report Type: 
  Country: None (occurrence: None)
  Receive Date: 20071017
  Receipt Date: 20070724
  Transmission Date: 20080405
  Serious: Yes (Other)
  Sender: FDA-Public Use
  Company Number: 2007061539

PATIENT
  Age: 18 Year
  Sex: Female
  Weight: 50 kg

DRUGS (5)
  1. DEPO-SUBQ PROVERA 104 [Suspect]
     Indication: CONTRACEPTION
     Dosage: SEE IMAGE
     Route: 058
     Dates: start: 20060401, end: 20060401
  2. DEPO-SUBQ PROVERA 104 [Suspect]
     Indication: CONTRACEPTION
     Dosage: SEE IMAGE
     Route: 058
     Dates: start: 20060701, end: 20060701
  3. DEPO-SUBQ PROVERA 104 [Suspect]
     Indication: CONTRACEPTION
     Dosage: SEE IMAGE
     Route: 058
     Dates: start: 20061001, end: 20061001
  4. DEPO-SUBQ PROVERA 104 [Suspect]
     Indication: CONTRACEPTION
     Dosage: SEE IMAGE
     Route: 058
     Dates: start: 20070101, end: 20070101
  5. DEPO-SUBQ PROVERA 104 [Suspect]
     Indication: CONTRACEPTION
     Dosage: SEE IMAGE
     Route: 058
     Dates: start: 20070409, end: 20070409

REACTIONS (1)
  - INJECTION SITE REACTION [None]
